FAERS Safety Report 20888041 (Version 1)
Quarter: 2022Q2

REPORT INFORMATION
  Report Type: Spontaneous
  Country: JP (occurrence: JP)
  Receive Date: 20220529
  Receipt Date: 20220529
  Transmission Date: 20220721
  Serious: Yes (Hospitalization)
  Sender: FDA-Public Use
  Company Number: JP-ALVOGEN-2022-ALVOGEN-120412

PATIENT
  Age: 55 Year
  Sex: Male

DRUGS (3)
  1. DEXAMETHASONE [Suspect]
     Active Substance: DEXAMETHASONE
     Indication: COVID-19
     Dosage: 6 MG/DAY FOR 9 DAYS
  2. REMDESIVIR [Suspect]
     Active Substance: REMDESIVIR
     Indication: COVID-19
     Dosage: 100 MG/DAY FOR 10 DAYS
  3. TOCILIZUMAB [Suspect]
     Active Substance: TOCILIZUMAB
     Indication: COVID-19
     Dosage: 760 MG ONCE

REACTIONS (2)
  - Abscess neck [Recovered/Resolved]
  - Arthritis bacterial [Recovered/Resolved]
